FAERS Safety Report 7927006-X (Version None)
Quarter: 2011Q4

REPORT INFORMATION
  Report Type: 
  Country: None (occurrence: None)
  Receive Date: 20111118
  Receipt Date: 20111114
  Transmission Date: 20120403
  Serious: Yes (Disabling, Other)
  Sender: FDA-Public Use
  Company Number: GB-BRISTOL-MYERS SQUIBB COMPANY-16228629

PATIENT
  Age: 63 Year
  Sex: Male
  Weight: 94 kg

DRUGS (17)
  1. NICORANDIL [Concomitant]
     Dates: start: 20110728
  2. LANSOPRAZOLE [Concomitant]
     Dates: start: 20110628
  3. ATENOLOL [Concomitant]
     Dates: start: 20110628
  4. FUROSEMIDE [Concomitant]
     Dates: start: 20110728
  5. AMITRIPTYLINE HCL [Concomitant]
     Dates: start: 20110819
  6. ASPIRIN [Concomitant]
     Dates: start: 20110628
  7. METFORMIN HCL [Concomitant]
     Dates: start: 20110804
  8. HYDROCORTISONE [Concomitant]
     Dates: start: 20110808, end: 20110815
  9. ACETAMINOPHEN [Concomitant]
     Dates: start: 20111026
  10. IBUPROFEN [Concomitant]
     Dates: start: 20111026, end: 20111027
  11. LOSARTAN [Concomitant]
     Dates: start: 20110628
  12. SAXAGLIPTIN [Suspect]
     Dates: start: 20111026
  13. CLARITHROMYCIN [Concomitant]
     Dates: start: 20110808, end: 20110815
  14. VENTOLIN [Concomitant]
     Dates: start: 20110826, end: 20110923
  15. TRAMADOL HCL [Concomitant]
     Dates: start: 20110826
  16. SIMVASTATIN [Concomitant]
     Dates: start: 20110804
  17. FLUTICASONE PROPIONATE/SALMETEROL [Concomitant]
     Dates: start: 20110826, end: 20110923

REACTIONS (1)
  - DIARRHOEA [None]
